FAERS Safety Report 15535175 (Version 1)
Quarter: 2018Q4

REPORT INFORMATION
  Report Type: Spontaneous
  Country: US (occurrence: US)
  Receive Date: 20181022
  Receipt Date: 20181022
  Transmission Date: 20190205
  Serious: No
  Sender: FDA-Public Use
  Company Number: US-LEO PHARMA-314240

PATIENT
  Sex: Male

DRUGS (2)
  1. PROTOPIC [Suspect]
     Active Substance: TACROLIMUS
     Indication: ECZEMA
     Route: 061
  2. ELIDEL [Concomitant]
     Active Substance: PIMECROLIMUS
     Indication: ECZEMA

REACTIONS (2)
  - Inappropriate schedule of product administration [Unknown]
  - Alcohol intolerance [Recovered/Resolved]
